FAERS Safety Report 11450627 (Version 1)
Quarter: 2015Q3

REPORT INFORMATION
  Report Type: Spontaneous
  Country: US (occurrence: None)
  Receive Date: 20150902
  Receipt Date: 20150902
  Transmission Date: 20151125
  Serious: No
  Sender: FDA-Public Use
  Company Number: None

PATIENT
  Age: 78 Year
  Sex: Male
  Weight: 87.09 kg

DRUGS (9)
  1. COREG [Concomitant]
     Active Substance: CARVEDILOL
  2. PRINIVIL [Concomitant]
     Active Substance: LISINOPRIL
  3. ALLOPURINOL. [Suspect]
     Active Substance: ALLOPURINOL
     Indication: PROPHYLAXIS
     Route: 048
     Dates: start: 20150805, end: 20150811
  4. LASIX [Concomitant]
     Active Substance: FUROSEMIDE
  5. ALLOPURINOL. [Suspect]
     Active Substance: ALLOPURINOL
     Indication: GOUT
     Route: 048
     Dates: start: 20150805, end: 20150811
  6. WARFARIN [Concomitant]
     Active Substance: WARFARIN
  7. ASPIRIN. [Concomitant]
     Active Substance: ASPIRIN
  8. LIPITOR [Concomitant]
     Active Substance: ATORVASTATIN CALCIUM
  9. POTASSIUM CHLORIDE. [Concomitant]
     Active Substance: POTASSIUM CHLORIDE

REACTIONS (3)
  - Chest pain [None]
  - Dyspnoea [None]
  - Feeling abnormal [None]

NARRATIVE: CASE EVENT DATE: 20150812
